FAERS Safety Report 20515563 (Version 3)
Quarter: 2023Q4

REPORT INFORMATION
  Report Type: Spontaneous
  Country: JP (occurrence: JP)
  Receive Date: 20220224
  Receipt Date: 20231006
  Transmission Date: 20240109
  Serious: Yes (Death, Life-Threatening, Other)
  Sender: FDA-Public Use
  Company Number: JP-JAZZ-2022-JP-004241

PATIENT
  Age: 50 Year
  Sex: Male
  Weight: 57.4 kg

DRUGS (4)
  1. DEFITELIO [Suspect]
     Active Substance: DEFIBROTIDE SODIUM
     Indication: Venoocclusive liver disease
     Dosage: 17.5 MILLIGRAM/KILOGRAM, QD
     Route: 042
     Dates: start: 20211214, end: 20211221
  2. DEFITELIO [Suspect]
     Active Substance: DEFIBROTIDE SODIUM
     Dosage: 22 MILLIGRAM/KILOGRAM, QD
     Route: 042
     Dates: start: 20211222, end: 20211227
  3. DEFITELIO [Suspect]
     Active Substance: DEFIBROTIDE SODIUM
     Dosage: 25 MILLIGRAM/KILOGRAM, QD
     Route: 042
     Dates: start: 20211228, end: 20211230
  4. DEFITELIO [Suspect]
     Active Substance: DEFIBROTIDE SODIUM
     Dosage: 25 MILLIGRAM/KILOGRAM, QD
     Route: 042
     Dates: start: 20220110, end: 20220124

REACTIONS (6)
  - Acute lymphocytic leukaemia [Fatal]
  - Multiple organ dysfunction syndrome [Fatal]
  - Epistaxis [Not Recovered/Not Resolved]
  - Hypotension [Recovered/Resolved]
  - Platelet count decreased [Unknown]
  - Asphyxia [Unknown]

NARRATIVE: CASE EVENT DATE: 20211223
